FAERS Safety Report 6626836-4 (Version None)
Quarter: 2010Q1

REPORT INFORMATION
  Report Type: 
  Country: None (occurrence: None)
  Receive Date: 20100308
  Receipt Date: 20100301
  Transmission Date: 20100710
  Serious: Yes (Other)
  Sender: FDA-Public Use
  Company Number: 2010SP005713

PATIENT
  Age: 38 Year
  Sex: Female

DRUGS (7)
  1. REFLEX (MIRTAZAPINE /01293201/) [Suspect]
     Indication: DEPRESSION
     Dosage: 15 MG; QD; PO, 30 MG; QD; PO
     Route: 048
     Dates: start: 20091107, end: 20091204
  2. REFLEX (MIRTAZAPINE /01293201/) [Suspect]
     Indication: DEPRESSION
     Dosage: 15 MG; QD; PO, 30 MG; QD; PO
     Route: 048
     Dates: start: 20091205, end: 20091221
  3. ZOLPIDEM TARTRATE [Concomitant]
  4. FLUNITRAZEPAM [Concomitant]
  5. NITRAZEPAM [Concomitant]
  6. AMOXAPINE [Concomitant]
  7. ETIZOLAM [Concomitant]

REACTIONS (1)
  - RHABDOMYOLYSIS [None]
